FAERS Safety Report 10818691 (Version 6)
Quarter: 2017Q1

REPORT INFORMATION
  Report Type: Spontaneous
  Country: US (occurrence: US)
  Receive Date: 20150218
  Receipt Date: 20170330
  Transmission Date: 20170428
  Serious: Yes (Other)
  Sender: FDA-Public Use
  Company Number: US-PFIZER INC-2015062780

PATIENT
  Age: 75 Year
  Sex: Female

DRUGS (1)
  1. LYRICA [Suspect]
     Active Substance: PREGABALIN
     Indication: NERVE INJURY
     Dosage: UNK, 3X/DAY
     Dates: start: 2012

REACTIONS (5)
  - Dementia [Unknown]
  - Dysgraphia [Unknown]
  - Tremor [Unknown]
  - Memory impairment [Unknown]
  - Hypoaesthesia [Unknown]
